FAERS Safety Report 5621814-6 (Version None)
Quarter: 2008Q1

REPORT INFORMATION
  Report Type: 
  Country: None (occurrence: None)
  Receive Date: 20080211
  Receipt Date: 20080131
  Transmission Date: 20080703
  Serious: Yes (Other)
  Sender: FDA-Public Use
  Company Number: PHNU2007DE03897

PATIENT
  Age: 67 Year
  Sex: Male
  Weight: 65 kg

DRUGS (17)
  1. EXJADE [Suspect]
     Indication: HAEMOSIDEROSIS
     Dosage: 1250 MG/ DAY
     Route: 048
     Dates: start: 20071025, end: 20071116
  2. AMARYL [Concomitant]
     Indication: DIABETES MELLITUS
     Dosage: 3 MG, QD
     Route: 065
  3. LANTUS [Concomitant]
     Indication: DIABETES MELLITUS
     Dosage: 100 IU, QD
     Route: 065
  4. TRANSFUSIONS [Concomitant]
     Indication: ANAEMIA
     Route: 065
  5. DECORTIN [Concomitant]
     Dosage: 10 MG, QD
     Route: 065
  6. SYREA [Concomitant]
     Dosage: 1 DF, BID
     Route: 065
  7. ZYLORIC [Concomitant]
     Dosage: 300 MG, QD
     Route: 048
  8. AMITRIPTYLINE HCL [Concomitant]
     Dosage: 25 MG, QD
     Route: 065
  9. DHEA [Concomitant]
     Dosage: 25 MG, QD
     Route: 065
  10. LANSOPRAZOLE [Concomitant]
     Dosage: 30 MG, QD
     Route: 048
  11. OPTISET [Concomitant]
     Indication: DIABETES MELLITUS
     Dosage: 40 IU, QD
     Route: 065
  12. METHOTREXAT [Concomitant]
     Dosage: 15 MG, QW
     Route: 065
  13. LEUKOVORIN DABUR [Concomitant]
     Dosage: 15 MG, QW
     Route: 065
  14. DURAGESIC-100 [Concomitant]
     Dosage: 100 UG, QW3
     Route: 062
  15. VALORON N [Concomitant]
     Dosage: UNK, PRN
     Route: 065
  16. MOTILIUM [Concomitant]
     Dosage: 1 ML, QD
     Route: 048
  17. PASPERTIN [Concomitant]
     Dosage: 1 ML, QD
     Route: 048

REACTIONS (1)
  - HYPOGLYCAEMIA [None]
